FAERS Safety Report 4438693-5 (Version None)
Quarter: 2004Q3

REPORT INFORMATION
  Report Type: 
  Country: None (occurrence: None)
  Receive Date: 20040830
  Receipt Date: 20040830
  Transmission Date: 20050211
  Serious: Yes (Hospitalization)
  Sender: FDA-Public Use
  Company Number: None

PATIENT
  Age: 65 Year
  Sex: Male

DRUGS (7)
  1. CYCLOPHOSPHAMIDE [Suspect]
     Indication: B-CELL LYMPHOMA
  2. CYCLOPHOSPHAMIDE [Suspect]
     Indication: LYMPHOCYTIC LYMPHOMA
  3. DOXORUBICIN HCL [Suspect]
     Indication: B-CELL LYMPHOMA
  4. DOXORUBICIN HCL [Suspect]
     Indication: LYMPHOCYTIC LYMPHOMA
  5. ONCOVIN [Suspect]
     Indication: B-CELL LYMPHOMA
  6. ONCOVIN [Suspect]
     Indication: LYMPHOCYTIC LYMPHOMA
  7. PREDNISONE [Suspect]
     Indication: B-CELL LYMPHOMA

REACTIONS (1)
  - FEBRILE NEUTROPENIA [None]
